FAERS Safety Report 16450517 (Version 1)
Quarter: 2019Q2

REPORT INFORMATION
  Report Type: Spontaneous
  Country: US (occurrence: US)
  Receive Date: 20190509
  Receipt Date: 20190509
  Transmission Date: 20190711
  Serious: No
  Sender: FDA-Public Use
  Company Number: None

PATIENT
  Age: 56 Year
  Sex: Female

DRUGS (2)
  1. VERZENIO [Suspect]
     Active Substance: ABEMACICLIB
     Indication: BREAST CANCER
     Route: 048
     Dates: start: 20190308
  2. MACROBID [Concomitant]
     Active Substance: NITROFURANTOIN\NITROFURANTOIN MONOHYDRATE

REACTIONS (7)
  - Therapy cessation [None]
  - Vomiting [None]
  - Diarrhoea [None]
  - Alopecia [None]
  - Urinary tract infection [None]
  - Manufacturing product shipping issue [None]
  - Nausea [None]

NARRATIVE: CASE EVENT DATE: 20190509
